FAERS Safety Report 11363068 (Version 1)
Quarter: 2015Q3

REPORT INFORMATION
  Report Type: Spontaneous
  Country: US (occurrence: None)
  Receive Date: 20150807
  Receipt Date: 20150807
  Transmission Date: 20151125
  Serious: No
  Sender: FDA-Public Use
  Company Number: None

PATIENT
  Sex: Female

DRUGS (1)
  1. SUTENT [Suspect]
     Active Substance: SUNITINIB MALATE
     Indication: MALIGNANT NEOPLASM OF THORAX
     Dosage: DAILY X 4 WEEKS THEN 2 WEEKS OFF
     Route: 048
     Dates: start: 20150727

REACTIONS (4)
  - Dysgeusia [None]
  - Paraesthesia [None]
  - Paraesthesia oral [None]
  - Eructation [None]
